FAERS Safety Report 6116214-9 (Version None)
Quarter: 2009Q1

REPORT INFORMATION
  Report Type: 
  Country: None (occurrence: None)
  Receive Date: 20090314
  Receipt Date: 20081202
  Transmission Date: 20090719
  Serious: No
  Sender: FDA-Public Use
  Company Number: US-ABBOTT-08P-163-0490756-00

PATIENT
  Sex: Female
  Weight: 59.02 kg

DRUGS (12)
  1. HUMIRA [Suspect]
     Indication: CROHN'S DISEASE
     Route: 058
     Dates: start: 20080809, end: 20080809
  2. HUMIRA [Suspect]
     Indication: ARTHRITIS
     Route: 058
     Dates: start: 20080822, end: 20080822
  3. HUMIRA [Suspect]
     Route: 058
     Dates: start: 20080905
  4. FENTANYL-25 [Concomitant]
     Indication: PAIN
     Route: 061
  5. BUPROPION HCL [Concomitant]
     Indication: PAIN
     Route: 048
  6. BUPROPION HCL [Concomitant]
     Indication: ANXIETY
  7. DULOXETINE HYDROCHLORIDE [Concomitant]
     Indication: PAIN
     Route: 048
  8. ESZOPICLONE [Concomitant]
     Indication: INSOMNIA
     Route: 048
  9. PREDNISONE [Concomitant]
     Indication: INFLAMMATION
     Route: 048
  10. PREGABALIN [Concomitant]
     Indication: NEUROPATHY PERIPHERAL
     Dosage: 75 MG (2 TABS)
     Route: 048
  11. SULFALAZINE EC [Concomitant]
     Indication: ARTHRITIS
     Route: 048
  12. VALACYCLOVIR [Concomitant]
     Indication: APHTHOUS STOMATITIS
     Route: 048

REACTIONS (1)
  - INFECTIVE TENOSYNOVITIS [None]
